FAERS Safety Report 6029410-6 (Version None)
Quarter: 2009Q1

REPORT INFORMATION
  Report Type: 
  Country: None (occurrence: None)
  Receive Date: 20090105
  Receipt Date: 20081219
  Transmission Date: 20090719
  Serious: Yes (Life-Threatening, Hospitalization)
  Sender: FDA-Public Use
  Company Number: 1000003325

PATIENT
  Age: 23 Year
  Sex: Female

DRUGS (5)
  1. CITALOPRAM HYDROBROMIDE [Suspect]
  2. DICLOFENAC SODIUM [Suspect]
  3. FLUOXETINE [Suspect]
  4. MIRTAZAPINE [Suspect]
  5. ZOPICLONE [Suspect]

REACTIONS (18)
  - ACIDOSIS [None]
  - ACUTE PULMONARY OEDEMA [None]
  - AGONAL RHYTHM [None]
  - ALANINE AMINOTRANSFERASE INCREASED [None]
  - BLOOD AMYLASE INCREASED [None]
  - BLOOD CREATINE PHOSPHOKINASE INCREASED [None]
  - BLOOD PRESSURE DECREASED [None]
  - CARDIAC ARREST [None]
  - CONTINUOUS HAEMODIAFILTRATION [None]
  - GLASGOW COMA SCALE ABNORMAL [None]
  - HEPATIC FUNCTION ABNORMAL [None]
  - HYPOTHERMIA [None]
  - MULTI-ORGAN DISORDER [None]
  - MULTI-ORGAN FAILURE [None]
  - MULTIPLE DRUG OVERDOSE [None]
  - OLIGURIA [None]
  - RESPIRATORY FAILURE [None]
  - VENTRICULAR FIBRILLATION [None]
